FAERS Safety Report 7402544-7 (Version None)
Quarter: 2011Q2

REPORT INFORMATION
  Report Type: 
  Country: None (occurrence: None)
  Receive Date: 20110408
  Receipt Date: 20110330
  Transmission Date: 20111010
  Serious: Yes (Other)
  Sender: FDA-Public Use
  Company Number: PHHO2011ES05568

PATIENT
  Sex: Female

DRUGS (2)
  1. FTY [Suspect]
     Indication: MULTIPLE SCLEROSIS
     Dosage: 0.5 MG, UNK
     Dates: start: 20101129, end: 20110329
  2. LORMETAZEPAM [Concomitant]

REACTIONS (1)
  - BASAL CELL CARCINOMA [None]
